FAERS Safety Report 22136636 (Version 1)
Quarter: 2023Q1

REPORT INFORMATION
  Report Type: Spontaneous
  Country: SE (occurrence: SE)
  Receive Date: 20230324
  Receipt Date: 20230324
  Transmission Date: 20230418
  Serious: Yes (Other)
  Sender: FDA-Public Use
  Company Number: None

PATIENT
  Age: 36 Year
  Sex: Female
  Weight: 63 kg

DRUGS (3)
  1. SUMATRIPTAN SUCCINATE [Suspect]
     Active Substance: SUMATRIPTAN SUCCINATE
     Indication: Migraine
     Dosage: 50 MILLIGRAM, PRN (1 TABLET AS NEEDED)
     Route: 048
     Dates: start: 20221128, end: 20221128
  2. SYMBICORT [Concomitant]
     Active Substance: BUDESONIDE\FORMOTEROL FUMARATE DIHYDRATE
     Dosage: STRENGTH: 160 MICROGRAM/4.5 MICROGRAM/INHALATION
     Dates: start: 20191101
  3. MONTELUKAST\MONTELUKAST SODIUM [Concomitant]
     Active Substance: MONTELUKAST\MONTELUKAST SODIUM
     Dosage: 10 MILLIGRAM, EVERY 11 DAYS
     Route: 048
     Dates: start: 20191101

REACTIONS (9)
  - Body temperature decreased [Recovered/Resolved]
  - Skin discolouration [Recovered/Resolved]
  - Nausea [Not Recovered/Not Resolved]
  - Chest pain [Recovering/Resolving]
  - Dizziness [Not Recovered/Not Resolved]
  - Hypoaesthesia [Recovered/Resolved]
  - Syncope [Recovered/Resolved]
  - Chest discomfort [Not Recovered/Not Resolved]
  - Dyspnoea [Not Recovered/Not Resolved]

NARRATIVE: CASE EVENT DATE: 20221128
